FAERS Safety Report 9108075 (Version 1)
Quarter: 2013Q1

REPORT INFORMATION
  Report Type: Spontaneous
  Country: DE (occurrence: DE)
  Receive Date: 20130221
  Receipt Date: 20130221
  Transmission Date: 20140127
  Serious: Yes (Hospitalization, Other)
  Sender: FDA-Public Use
  Company Number: DE-ELI_LILLY_AND_COMPANY-DE201302003574

PATIENT
  Sex: Male

DRUGS (1)
  1. FORSTEO [Suspect]
     Indication: OSTEOPOROSIS
     Dosage: UNK, QD
     Route: 058
     Dates: start: 20111123

REACTIONS (3)
  - Comminuted fracture [Not Recovered/Not Resolved]
  - Fall [Not Recovered/Not Resolved]
  - Accident at home [Not Recovered/Not Resolved]
